FAERS Safety Report 18854360 (Version 1)
Quarter: 2021Q1

REPORT INFORMATION
  Report Type: Spontaneous
  Country: DE (occurrence: DE)
  Receive Date: 20210205
  Receipt Date: 20210205
  Transmission Date: 20210420
  Serious: Yes (Life-Threatening, Other)
  Sender: FDA-Public Use
  Company Number: DE-BAUSCH-BL-2021-003263

PATIENT
  Age: 29 Year
  Sex: Female
  Weight: 53 kg

DRUGS (12)
  1. VENLAFAXIN [Suspect]
     Active Substance: VENLAFAXINE HYDROCHLORIDE
     Route: 048
     Dates: start: 20190810, end: 20201231
  2. VALDOXAN [Suspect]
     Active Substance: AGOMELATINE
     Indication: INITIAL INSOMNIA
  3. FERRO?SANOL DUODENAL [Suspect]
     Active Substance: FERROUS GLYCINE SULFATE
     Indication: FATIGUE
     Dosage: 1?0?0; 100 MG DAILY IN THE MORNING PLUS MORE IF NECESSARY
     Route: 048
     Dates: start: 20201004, end: 20201112
  4. VENLAFAXIN [Suspect]
     Active Substance: VENLAFAXINE HYDROCHLORIDE
     Indication: DEPRESSION
     Route: 048
     Dates: start: 20190810
  5. TAVOR (LORAZEPAM) [Suspect]
     Active Substance: LORAZEPAM
     Indication: RESTLESSNESS
  6. FERRO?SANOL DUODENAL [Suspect]
     Active Substance: FERROUS GLYCINE SULFATE
     Indication: ABDOMINAL DISCOMFORT
  7. TAVOR (LORAZEPAM) [Suspect]
     Active Substance: LORAZEPAM
     Indication: PANIC ATTACK
  8. VALDOXAN [Suspect]
     Active Substance: AGOMELATINE
     Indication: RESTLESSNESS
     Dosage: 25 ? 50 MG
     Route: 048
     Dates: start: 201911, end: 20201113
  9. TAVOR (LORAZEPAM) [Suspect]
     Active Substance: LORAZEPAM
     Indication: ANXIETY
     Dosage: 1 TABLET PRESCRIBED ABOUT 6 TIMES WITHOUT WANTING TO
     Route: 048
     Dates: start: 201907, end: 201909
  10. VENLAFAXIN [Suspect]
     Active Substance: VENLAFAXINE HYDROCHLORIDE
     Indication: BURNOUT SYNDROME
     Route: 048
     Dates: start: 2019, end: 20201130
  11. VALDOXAN [Suspect]
     Active Substance: AGOMELATINE
     Indication: SLEEP DISORDER
  12. FERRO?SANOL DUODENAL [Suspect]
     Active Substance: FERROUS GLYCINE SULFATE
     Indication: IRON DEFICIENCY

REACTIONS (8)
  - Impaired quality of life [Not Recovered/Not Resolved]
  - Serotonin syndrome [Unknown]
  - Feeling abnormal [Unknown]
  - Headache [Not Recovered/Not Resolved]
  - Depression [Unknown]
  - Respiratory distress [Recovering/Resolving]
  - Dizziness [Not Recovered/Not Resolved]
  - Pruritus [Unknown]

NARRATIVE: CASE EVENT DATE: 2019
